FAERS Safety Report 5962931-0 (Version None)
Quarter: 2008Q4

REPORT INFORMATION
  Report Type: 
  Country: None (occurrence: None)
  Receive Date: 20081117
  Receipt Date: 20081117
  Transmission Date: 20090506
  Serious: Yes (Hospitalization)
  Sender: FDA-Public Use
  Company Number: None

PATIENT
  Age: 36 Year
  Sex: Female
  Weight: 70.3075 kg

DRUGS (5)
  1. PRISTIQ [Suspect]
     Indication: DEPRESSIVE SYMPTOM
     Dosage: 50MG, DAILY PO
     Route: 048
     Dates: start: 20081011
  2. RITALIN [Concomitant]
  3. MULTI-VITAMIN [Concomitant]
  4. CALCIUM+D [Concomitant]
  5. IRON SUPPLEMENT [Concomitant]

REACTIONS (9)
  - ANXIETY [None]
  - CHOREA [None]
  - FEELING JITTERY [None]
  - IRRITABILITY [None]
  - MOUTH ULCERATION [None]
  - NONSPECIFIC REACTION [None]
  - PAIN IN EXTREMITY [None]
  - RESTLESSNESS [None]
  - SCAB [None]
